FAERS Safety Report 13439269 (Version 1)
Quarter: 2017Q2

REPORT INFORMATION
  Report Type: Spontaneous
  Country: US (occurrence: US)
  Receive Date: 20170413
  Receipt Date: 20170413
  Transmission Date: 20170830
  Serious: Yes (Hospitalization, Other)
  Sender: FDA-Public Use
  Company Number: US-BAUSCH-BL-2017-009612

PATIENT
  Sex: Female
  Weight: 107.14 kg

DRUGS (2)
  1. AMIODARONE [Suspect]
     Active Substance: AMIODARONE
     Indication: ATRIAL FIBRILLATION
     Route: 048
     Dates: start: 20160817, end: 20161101
  2. CARDIZEM [Suspect]
     Active Substance: DILTIAZEM HYDROCHLORIDE
     Indication: HEART RATE DECREASED
     Route: 048
     Dates: end: 201611

REACTIONS (11)
  - Pruritus [Recovered/Resolved]
  - Dizziness [Recovered/Resolved]
  - Weight increased [Not Recovered/Not Resolved]
  - Feeling abnormal [Recovered/Resolved]
  - Atrial flutter [Recovered/Resolved]
  - Formication [Recovered/Resolved]
  - Atrial fibrillation [Recovered/Resolved]
  - Foot fracture [Recovered/Resolved]
  - Mental disorder [Recovered/Resolved]
  - Cardiac operation [Recovered/Resolved]
  - Insomnia [Recovered/Resolved]

NARRATIVE: CASE EVENT DATE: 2016
